FAERS Safety Report 7489184-9 (Version None)
Quarter: 2011Q2

REPORT INFORMATION
  Report Type: 
  Country: None (occurrence: None)
  Receive Date: 20110518
  Receipt Date: 20110509
  Transmission Date: 20111010
  Serious: Yes (Other)
  Sender: FDA-Public Use
  Company Number: JP-AMGEN-JPNSP2011022086

PATIENT
  Age: 56 Year
  Sex: Female
  Weight: 52.5 kg

DRUGS (22)
  1. METHOTREXATE [Suspect]
     Dosage: 8 MG, WEEKLY
     Route: 048
     Dates: start: 20060301
  2. PREDNISOLONE [Suspect]
     Dosage: 2.5 MG, 1X/DAY
     Route: 048
     Dates: start: 20101130, end: 20110425
  3. REMICADE [Concomitant]
     Dosage: 250 MG, QD
     Route: 048
     Dates: start: 20100501
  4. METHOTREXATE [Suspect]
     Dosage: 8 MG, WEEKLY
     Route: 048
     Dates: end: 20050801
  5. METHOTREXATE [Suspect]
     Dosage: 8 MG, WEEKLY
     Route: 048
     Dates: start: 20050901
  6. PREDNISOLONE [Suspect]
     Indication: RHEUMATOID ARTHRITIS
     Dosage: 4 MG, QD
     Route: 048
     Dates: end: 20050801
  7. PREDNISOLONE [Suspect]
     Dosage: 5 MG, 1X/DAY
     Route: 048
     Dates: start: 20110426
  8. REMICADE [Concomitant]
     Dosage: 200 MG, QD
     Route: 048
     Dates: start: 20100101
  9. ENBREL [Suspect]
     Indication: RHEUMATOID ARTHRITIS
     Dosage: 25 MG, WEEKLY
     Route: 058
     Dates: start: 20100802, end: 20100809
  10. METHOTREXATE [Suspect]
     Indication: RHEUMATOID ARTHRITIS
     Dosage: 6 MG, QWK
  11. ENBREL [Suspect]
     Dosage: 25 MG, 2X/WEEK
     Route: 058
     Dates: start: 20100812, end: 20110414
  12. METHOTREXATE [Suspect]
     Dosage: 8 MG, WEEKLY
     Dates: start: 20090301
  13. METHOTREXATE [Suspect]
     Dosage: 10 MG, WEEKLY
     Route: 048
     Dates: start: 20100101
  14. PREDNISOLONE [Suspect]
     Dosage: 3 MG, QD
     Route: 048
     Dates: start: 20050901
  15. METHOTREXATE [Suspect]
     Dosage: 10 MG, WEEKLY
     Route: 048
     Dates: start: 20091101
  16. FOLIC ACID [Suspect]
     Indication: FOLATE DEFICIENCY
     Dosage: 5 MG, WEEKLY
     Route: 048
  17. REMICADE [Concomitant]
     Dosage: 200 MG, QD
     Route: 048
     Dates: start: 20091101
  18. FAMOTIDINE [Suspect]
     Indication: GASTRITIS PROPHYLAXIS
     Dosage: 20 MG, 1X/DAY
     Route: 048
  19. PREDNISOLONE [Suspect]
     Dosage: 5 MG, 1X/DAY
     Route: 048
     Dates: start: 20100101, end: 20101129
  20. REMICADE [Concomitant]
     Dosage: 160 MG, QD
     Route: 048
     Dates: start: 20090801
  21. PREDNISOLONE [Suspect]
     Dosage: 2 MG, QD
     Route: 048
     Dates: start: 20060301
  22. REMICADE [Concomitant]
     Dosage: 160 MG, QD
     Dates: start: 20090301

REACTIONS (2)
  - BACK PAIN [None]
  - HENOCH-SCHONLEIN PURPURA [None]
